FAERS Safety Report 9342949 (Version 1)
Quarter: 2013Q2

REPORT INFORMATION
  Report Type: Spontaneous
  Country: US (occurrence: US)
  Receive Date: 20130611
  Receipt Date: 20130611
  Transmission Date: 20140414
  Serious: Yes (Other)
  Sender: FDA-Public Use
  Company Number: US-BAYER-2013-070556

PATIENT
  Age: 37 Year
  Sex: Female
  Weight: 74 kg

DRUGS (2)
  1. MIDOL MENSTRUAL COMPLETE FORMULA [Suspect]
     Indication: DYSMENORRHOEA
     Dosage: 2 DF, ONCE
     Route: 048
     Dates: start: 20130601, end: 20130601
  2. MELATONIN [Concomitant]

REACTIONS (13)
  - Cough [Recovered/Resolved]
  - Dyspnoea [None]
  - Oropharyngeal discomfort [Recovered/Resolved]
  - Feeling jittery [Recovered/Resolved]
  - Dizziness [Recovered/Resolved]
  - Hypersensitivity [Recovered/Resolved]
  - Dizziness [Recovered/Resolved]
  - Feeling jittery [Recovered/Resolved]
  - Dyspnoea [Recovered/Resolved]
  - Cough [Recovered/Resolved]
  - Pharyngeal oedema [Recovered/Resolved]
  - Oropharyngeal discomfort [Recovered/Resolved]
  - Oropharyngeal discomfort [Recovered/Resolved]
